FAERS Safety Report 7984131-5 (Version None)
Quarter: 2011Q4

REPORT INFORMATION
  Report Type: 
  Country: None (occurrence: None)
  Receive Date: 20111216
  Receipt Date: 20111202
  Transmission Date: 20120403
  Serious: Yes (Hospitalization, Disabling, Other)
  Sender: FDA-Public Use
  Company Number: DE-PFIZER INC-2011133671

PATIENT
  Age: 50 Year
  Sex: Female

DRUGS (6)
  1. PANTOPRAZOLE SODIUM [Concomitant]
     Dosage: UNK
  2. RAMIPRIL [Suspect]
     Dosage: UNK
     Route: 048
     Dates: start: 20100901, end: 20101207
  3. LOSARTAN POTASSIUM [Suspect]
     Dosage: UNK
     Dates: start: 20100101
  4. CALCIUM [Concomitant]
     Dosage: UNK
  5. FORMOTEROL W/BUDESONIDE [Concomitant]
     Dosage: 160 MG, 2X/DAY
  6. VITAMIN D [Concomitant]
     Dosage: UNK

REACTIONS (16)
  - OROPHARYNGEAL PAIN [None]
  - SUFFOCATION FEELING [None]
  - ADVERSE REACTION [None]
  - OEDEMA PERIPHERAL [None]
  - COUGH [None]
  - SENSATION OF FOREIGN BODY [None]
  - RESPIRATORY DISORDER [None]
  - DYSPNOEA [None]
  - BRONCHOSPASM [None]
  - ANGIOEDEMA [None]
  - SWELLING FACE [None]
  - ASTHMA [None]
  - RESPIRATORY ARREST [None]
  - VIRAL INFECTION [None]
  - GENERAL PHYSICAL HEALTH DETERIORATION [None]
  - THROAT IRRITATION [None]
